FAERS Safety Report 20169821 (Version 1)
Quarter: 2021Q4

REPORT INFORMATION
  Report Type: Spontaneous
  Country: US (occurrence: None)
  Receive Date: 20211209
  Receipt Date: 20211209
  Transmission Date: 20220303
  Serious: No
  Sender: FDA-Public Use
  Company Number: None

PATIENT
  Sex: Female

DRUGS (1)
  1. ICATIBANT ACETATE [Suspect]
     Active Substance: ICATIBANT ACETATE
     Indication: Hereditary angioedema
     Dosage: FREQUENCY : AS NEEDED;?
     Route: 058
     Dates: start: 202106

REACTIONS (6)
  - Weight increased [None]
  - Swelling [None]
  - Symptom recurrence [None]
  - COVID-19 immunisation [None]
  - Influenza immunisation [None]
  - Vaccination complication [None]
